FAERS Safety Report 7701478-8 (Version None)
Quarter: 2011Q3

REPORT INFORMATION
  Report Type: 
  Country: None (occurrence: None)
  Receive Date: 20110822
  Receipt Date: 20110815
  Transmission Date: 20111222
  Serious: Yes (Disabling)
  Sender: FDA-Public Use
  Company Number: GB-TEVA-286868ISR

PATIENT
  Age: 72 Year
  Sex: Male
  Weight: 83.3 kg

DRUGS (1)
  1. OXALIPLATIN [Suspect]
     Indication: COLON CANCER METASTATIC
     Route: 042

REACTIONS (2)
  - DEAFNESS NEUROSENSORY [None]
  - OTOTOXICITY [None]
